FAERS Safety Report 17031703 (Version 1)
Quarter: 2019Q4

REPORT INFORMATION
  Report Type: Spontaneous
  Country: US (occurrence: US)
  Receive Date: 20191113
  Receipt Date: 20191113
  Transmission Date: 20200122
  Serious: Yes (Life-Threatening, Disabling, Other)
  Sender: FDA-Public Use
  Company Number: None

PATIENT
  Age: 35 Year
  Sex: Female
  Weight: 144 kg

DRUGS (23)
  1. SPIRIVA [Concomitant]
     Active Substance: TIOTROPIUM BROMIDE MONOHYDRATE
  2. VITAMIN E [Concomitant]
     Active Substance: .ALPHA.-TOCOPHEROL
  3. ZYRTEC [Concomitant]
     Active Substance: CETIRIZINE HYDROCHLORIDE
  4. CRANBERRY SUPPLEMENT [Concomitant]
  5. SINGULAIR [Concomitant]
     Active Substance: MONTELUKAST SODIUM
  6. OMEPRAZOLE. [Concomitant]
     Active Substance: OMEPRAZOLE
  7. PROAIR HFA [Concomitant]
     Active Substance: ALBUTEROL SULFATE
  8. MECLIZINE [Concomitant]
     Active Substance: MECLIZINE HYDROCHLORIDE
  9. MIRENA [Suspect]
     Active Substance: LEVONORGESTREL
     Indication: CONTRACEPTION
     Dosage: ?          QUANTITY:1 IUD;OTHER FREQUENCY:EVERY 5 YEARS;?
     Route: 067
     Dates: start: 20190802, end: 20191111
  10. KEPPRA [Concomitant]
     Active Substance: LEVETIRACETAM
  11. VESICARE [Concomitant]
     Active Substance: SOLIFENACIN SUCCINATE
  12. FLONASE [Concomitant]
     Active Substance: FLUTICASONE PROPIONATE
  13. FEMININE PROBIOTIC [Concomitant]
  14. JENCYCLA [Concomitant]
     Active Substance: NORETHINDRONE
  15. ALBUTEROL SULFATE. [Concomitant]
     Active Substance: ALBUTEROL SULFATE
  16. SYMBICORT [Concomitant]
     Active Substance: BUDESONIDE\FORMOTEROL FUMARATE DIHYDRATE
  17. MELATONIN [Concomitant]
     Active Substance: MELATONIN
  18. VITAMIN B [Concomitant]
     Active Substance: VITAMIN B
  19. FIORICET [Concomitant]
     Active Substance: ACETAMINOPHEN\BUTALBITAL\CAFFEINE
  20. PROPRANOLOL [Concomitant]
     Active Substance: PROPRANOLOL HYDROCHLORIDE
  21. BIOTIN [Concomitant]
     Active Substance: BIOTIN
  22. CALCIUM [Concomitant]
     Active Substance: CALCIUM
  23. MULTIVITAMIN [Concomitant]
     Active Substance: VITAMINS

REACTIONS (9)
  - Depression [None]
  - Seizure [None]
  - Anxiety [None]
  - Abdominal pain upper [None]
  - Psychogenic seizure [None]
  - Mood swings [None]
  - Nervousness [None]
  - Migraine [None]
  - Hypertension [None]

NARRATIVE: CASE EVENT DATE: 20190802
